FAERS Safety Report 19589711 (Version 1)
Quarter: 2021Q3

REPORT INFORMATION
  Report Type: Report from Study
  Country: DE (occurrence: DE)
  Receive Date: 20210721
  Receipt Date: 20210721
  Transmission Date: 20211014
  Serious: Yes (Hospitalization)
  Sender: FDA-Public Use
  Company Number: DE-MYLANLABS-2021M1043249

PATIENT
  Age: 79 Year
  Sex: Female
  Weight: 59 kg

DRUGS (9)
  1. DEXAMETHASONE. [Suspect]
     Active Substance: DEXAMETHASONE
     Dosage: 20 MILLIGRAM, QD
     Route: 042
     Dates: start: 20170223
  2. BENDAMUSTINE HYDROCHLORIDE. [Suspect]
     Active Substance: BENDAMUSTINE HYDROCHLORIDE
     Dosage: 112 MILLIGRAM, QD
     Route: 042
     Dates: start: 20170911, end: 20170912
  3. CARFILZOMIB [Suspect]
     Active Substance: CARFILZOMIB
     Dosage: 43.2 MILLIGRAM, QD
     Route: 042
     Dates: start: 20170223
  4. DEXAMETHASONE. [Suspect]
     Active Substance: DEXAMETHASONE
     Indication: PLASMA CELL MYELOMA
     Dosage: 20 MILLIGRAM, QD
     Route: 042
     Dates: start: 20170821, end: 20170821
  5. DEXAMETHASONE. [Suspect]
     Active Substance: DEXAMETHASONE
     Dosage: 20 MILLIGRAM
     Route: 042
     Dates: start: 20170911, end: 20170912
  6. CARFILZOMIB [Suspect]
     Active Substance: CARFILZOMIB
     Indication: PLASMA CELL MYELOMA
     Dosage: 43.2 MILLIGRAM/SQ. METER, QD
     Route: 042
     Dates: start: 20170821, end: 20170821
  7. CARFILZOMIB [Suspect]
     Active Substance: CARFILZOMIB
     Dosage: 43.2 MILLIGRAM
     Route: 042
     Dates: start: 20170911, end: 20170912
  8. BENDAMUSTINE HYDROCHLORIDE. [Suspect]
     Active Substance: BENDAMUSTINE HYDROCHLORIDE
     Dosage: 1, 111.9 UNKNOWN UNITS, ONCE DAILY
     Route: 042
     Dates: start: 20170223
  9. BENDAMUSTINE HYDROCHLORIDE. [Suspect]
     Active Substance: BENDAMUSTINE HYDROCHLORIDE
     Indication: PRODUCT USED FOR UNKNOWN INDICATION
     Dosage: 1, 111.9 UNKNOWN UNITS, ONCE DAILY
     Route: 042
     Dates: start: 20170821, end: 20170821

REACTIONS (2)
  - Pneumonia bacterial [Recovered/Resolved]
  - Syncope [Recovered/Resolved]

NARRATIVE: CASE EVENT DATE: 20170821
